FAERS Safety Report 24586535 (Version 1)
Quarter: 2024Q4

REPORT INFORMATION
  Report Type: Spontaneous
  Country: CN (occurrence: CN)
  Receive Date: 20241106
  Receipt Date: 20241106
  Transmission Date: 20250115
  Serious: Yes (Disabling, Other)
  Sender: SANOFI AVENTIS
  Company Number: CN-SA-2024SA315192

PATIENT
  Age: 77 Year
  Weight: 71 kg

DRUGS (2)
  1. ELOXATIN [Suspect]
     Active Substance: OXALIPLATIN
     Indication: Colon cancer
     Dosage: 200 MG, 1X
     Route: 041
     Dates: start: 20240912, end: 20240912
  2. CAPECITABINE [Suspect]
     Active Substance: CAPECITABINE
     Indication: Colon cancer
     Dosage: 3 DF, BID
     Route: 048
     Dates: start: 20240912, end: 20240912

REACTIONS (4)
  - Blood creatinine increased [Recovering/Resolving]
  - Renal impairment [Recovering/Resolving]
  - Urine output increased [Recovering/Resolving]
  - Chromaturia [Recovering/Resolving]

NARRATIVE: CASE EVENT DATE: 20241014
